FAERS Safety Report 13655551 (Version 3)
Quarter: 2017Q3

REPORT INFORMATION
  Report Type: Spontaneous
  Country: US (occurrence: US)
  Receive Date: 20170615
  Receipt Date: 20170906
  Transmission Date: 20171127
  Serious: Yes (Hospitalization, Other)
  Sender: FDA-Public Use
  Company Number: US-GLAXOSMITHKLINE-US2017092012

PATIENT
  Sex: Female
  Weight: 59.86 kg

DRUGS (2)
  1. EXCEDRIN [Suspect]
     Active Substance: ACETAMINOPHEN\ASPIRIN\CAFFEINE
     Indication: HEADACHE
  2. EXCEDRIN [Suspect]
     Active Substance: ACETAMINOPHEN\ASPIRIN\CAFFEINE
     Indication: MIGRAINE
     Dosage: 2 DF, UNK
     Dates: start: 1970

REACTIONS (4)
  - Hepatitis C [Not Recovered/Not Resolved]
  - Ulcer haemorrhage [Recovered/Resolved]
  - Incorrect drug administration duration [Unknown]
  - Transmission of an infectious agent via product [Recovered/Resolved]

NARRATIVE: CASE EVENT DATE: 1986
